FAERS Safety Report 14794532 (Version 1)
Quarter: 2018Q2

REPORT INFORMATION
  Report Type: Spontaneous
  Country: US (occurrence: US)
  Receive Date: 20180423
  Receipt Date: 20180423
  Transmission Date: 20180711
  Serious: Yes (Other)
  Sender: FDA-Public Use
  Company Number: US-FRESENIUS KABI-FK201804664

PATIENT
  Sex: Female

DRUGS (7)
  1. PEPCID [Concomitant]
     Active Substance: FAMOTIDINE
     Indication: PREMEDICATION
     Route: 065
  2. ANTI-NAUSEA [Concomitant]
     Active Substance: UNSPECIFIED INGREDIENT
     Indication: PREMEDICATION
     Route: 065
  3. PACLITAXEL INJECTION, USP [Suspect]
     Active Substance: PACLITAXEL
     Indication: FEMALE REPRODUCTIVE NEOPLASM
     Route: 042
     Dates: start: 20180410, end: 20180410
  4. BENADRYL [Concomitant]
     Active Substance: DIPHENHYDRAMINE HYDROCHLORIDE
     Indication: PREMEDICATION
     Route: 065
  5. CARBOPLATIN. [Concomitant]
     Active Substance: CARBOPLATIN
     Indication: FEMALE REPRODUCTIVE NEOPLASM
     Route: 065
  6. DEXAMETHASONE. [Concomitant]
     Active Substance: DEXAMETHASONE
     Indication: PREMEDICATION
     Route: 065
  7. OLOXI [Concomitant]
     Indication: PREMEDICATION
     Route: 065

REACTIONS (3)
  - Erythema [Recovered/Resolved]
  - Chest discomfort [Recovered/Resolved]
  - Back pain [Recovered/Resolved]

NARRATIVE: CASE EVENT DATE: 20180410
